FAERS Safety Report 4592593-9 (Version None)
Quarter: 2005Q1

REPORT INFORMATION
  Report Type: 
  Country: None (occurrence: None)
  Receive Date: 20050228
  Receipt Date: 20041027
  Transmission Date: 20050727
  Serious: Yes (Hospitalization, Other)
  Sender: FDA-Public Use
  Company Number: JP-BRISTOL-MYERS SQUIBB COMPANY-12748836

PATIENT
  Age: 49 Year
  Sex: Female

DRUGS (6)
  1. TAXOL [Suspect]
     Indication: BREAST CANCER
     Route: 041
     Dates: start: 20030311, end: 20030616
  2. SEROTONE [Suspect]
     Indication: PREMEDICATION
     Route: 041
     Dates: start: 20030311, end: 20030616
  3. DECADRON [Suspect]
     Indication: PREMEDICATION
     Route: 042
     Dates: start: 20030311, end: 20030616
  4. GASTER [Suspect]
     Indication: PREMEDICATION
     Route: 042
     Dates: start: 20030311, end: 20030616
  5. RESTAMIN [Suspect]
     Indication: PREMEDICATION
     Route: 048
     Dates: start: 20030311, end: 20030616
  6. SEROTONE [Concomitant]
     Route: 048
     Dates: start: 20030312, end: 20030316

REACTIONS (11)
  - ALANINE AMINOTRANSFERASE INCREASED [None]
  - ALOPECIA [None]
  - ASPARTATE AMINOTRANSFERASE INCREASED [None]
  - ASTHENIA [None]
  - BLOOD CHOLESTEROL INCREASED [None]
  - BLOOD CREATINE PHOSPHOKINASE INCREASED [None]
  - BLOOD LACTATE DEHYDROGENASE INCREASED [None]
  - DIARRHOEA [None]
  - DYSGEUSIA [None]
  - MALAISE [None]
  - POLYMYOSITIS [None]
